FAERS Safety Report 6339029-5 (Version None)
Quarter: 2009Q3

REPORT INFORMATION
  Report Type: 
  Country: None (occurrence: None)
  Receive Date: 20090821
  Receipt Date: 20090715
  Transmission Date: 20100115
  Serious: No
  Sender: FDA-Public Use
  Company Number: 8044025

PATIENT
  Age: 64 Year
  Sex: Female
  Weight: 68 kg

DRUGS (16)
  1. CIMZIA [Suspect]
     Indication: CROHN'S DISEASE
     Dosage: 400 MG SC
     Route: 058
     Dates: start: 20090114
  2. PENTASA [Concomitant]
  3. WELCHOL [Concomitant]
  4. PRILOSEC [Concomitant]
  5. PREMARIN [Concomitant]
  6. DIOVAN [Concomitant]
  7. TOPROL-XL [Concomitant]
  8. LEVOTHYROXINE SODIUM [Concomitant]
  9. TORSEMIDE [Concomitant]
  10. TRAVATAN [Concomitant]
  11. LEXAPRO [Concomitant]
  12. ZANAFLEX [Concomitant]
  13. KLOR-CON [Concomitant]
  14. BONIVA [Concomitant]
  15. MUCINEX [Concomitant]
  16. ZYRTEC [Concomitant]

REACTIONS (10)
  - DIARRHOEA [None]
  - EYE PAIN [None]
  - FLUSHING [None]
  - HYPOAESTHESIA FACIAL [None]
  - INJECTION SITE PAIN [None]
  - MUSCLE SPASMS [None]
  - NASOPHARYNGITIS [None]
  - NAUSEA [None]
  - PAIN [None]
  - VISUAL IMPAIRMENT [None]
